FAERS Safety Report 7405953-5 (Version None)
Quarter: 2011Q2

REPORT INFORMATION
  Report Type: 
  Country: None (occurrence: None)
  Receive Date: 20110401
  Receipt Date: 20110321
  Transmission Date: 20111010
  Serious: Yes (Other)
  Sender: FDA-Public Use
  Company Number: DSM-2011-00319

PATIENT
  Age: 63 Year
  Sex: Female
  Weight: 79 kg

DRUGS (3)
  1. OLMETEC (OLMESARTAN MEDOXOMIL) (20 MILLIGRAM, TABLET) (OLMESARTAN MEDO [Suspect]
     Indication: HYPERTENSION
     Dosage: 20 MG (20 MG, 1 IN 1 D), ORAL
     Route: 048
     Dates: start: 20101101, end: 20110301
  2. REMERGON (MIRTAZAPINE) (30 MILLIGRAM) (MIRTAZAPINE) [Suspect]
  3. SIMVASTATIN (SIMVASTATIN) (20 MILLIGRAM) (SIMVASTATIN) [Concomitant]

REACTIONS (1)
  - LICHEN PLANUS [None]
